FAERS Safety Report 9410380 (Version 2)
Quarter: 2013Q3

REPORT INFORMATION
  Report Type: Spontaneous
  Country: CA (occurrence: CA)
  Receive Date: 20130719
  Receipt Date: 20130801
  Transmission Date: 20140515
  Serious: Yes (Death)
  Sender: FDA-Public Use
  Company Number: CA-GLAXOSMITHKLINE-A1031442A

PATIENT
  Age: 57 Year
  Sex: Female
  Weight: 75 kg

DRUGS (1)
  1. REVOLADE [Suspect]
     Indication: IMMUNE THROMBOCYTOPENIC PURPURA
     Dosage: 50MG PER DAY
     Route: 048
     Dates: start: 20121112

REACTIONS (5)
  - Haemorrhage intracranial [Fatal]
  - Brain compression [Unknown]
  - Brain midline shift [Unknown]
  - Drug ineffective [Unknown]
  - Platelet count decreased [Unknown]
